FAERS Safety Report 7295545-3 (Version None)
Quarter: 2011Q1

REPORT INFORMATION
  Report Type: 
  Country: None (occurrence: None)
  Receive Date: 20110216
  Receipt Date: 20101203
  Transmission Date: 20110831
  Serious: No
  Sender: FDA-Public Use
  Company Number: US-ABBOTT-10P-163-0689290-00

PATIENT
  Sex: Female
  Weight: 89.892 kg

DRUGS (5)
  1. METFORMIN HCL [Concomitant]
     Indication: PRODUCT USED FOR UNKNOWN INDICATION
  2. NEXIUM [Concomitant]
     Indication: PRODUCT USED FOR UNKNOWN INDICATION
  3. UNKNOWN MEDICATION [Concomitant]
     Indication: ASTHMA
     Route: 055
  4. SYNTHROID [Concomitant]
     Indication: PRODUCT USED FOR UNKNOWN INDICATION
  5. SIMCOR [Suspect]
     Indication: HYPERLIPIDAEMIA
     Dosage: MONDAY, WEDNESDAY AND FRIDAY
     Dates: start: 20101012

REACTIONS (5)
  - DYSPEPSIA [None]
  - BACK PAIN [None]
  - ABDOMINAL PAIN UPPER [None]
  - PAIN IN EXTREMITY [None]
  - ABDOMINAL PAIN [None]
